FAERS Safety Report 6330022-5 (Version None)
Quarter: 2009Q3

REPORT INFORMATION
  Report Type: 
  Country: None (occurrence: None)
  Receive Date: 20090825
  Receipt Date: 20090814
  Transmission Date: 20100115
  Serious: Yes (Hospitalization)
  Sender: FDA-Public Use
  Company Number: GXKR2009US07850

PATIENT
  Age: 69 Year
  Sex: Female
  Weight: 62.5 kg

DRUGS (7)
  1. FLECAINIDE (NGX) (FLECAINIDE) UNKNOWN [Suspect]
     Indication: ATRIAL FIBRILLATION
     Dosage: 100 MG, BID, 50 MG, BID, ORAL
     Route: 048
  2. PAROXETINE HCL [Suspect]
     Indication: MAJOR DEPRESSION
     Dosage: 40 MG DAILY
  3. CARVEDILOL [Concomitant]
  4. WARFARIN SODIUM [Concomitant]
  5. FOLIC ACID [Concomitant]
  6. LEVOTHYROXINE SODIUM [Concomitant]
  7. PANTOPRAZOLE SODIUM [Concomitant]

REACTIONS (7)
  - CONFUSIONAL STATE [None]
  - DELIRIUM [None]
  - DISSOCIATION [None]
  - DRUG INTERACTION [None]
  - HYPOPHAGIA [None]
  - PARANOIA [None]
  - REFUSAL OF TREATMENT BY PATIENT [None]
